FAERS Safety Report 4451448-0 (Version None)
Quarter: 2004Q3

REPORT INFORMATION
  Report Type: 
  Country: None (occurrence: None)
  Receive Date: 20040916
  Receipt Date: 20040910
  Transmission Date: 20050211
  Serious: Yes (Hospitalization)
  Sender: FDA-Public Use
  Company Number: AU-ROCHE-380342

PATIENT
  Age: 51 Year
  Sex: Female

DRUGS (2)
  1. ROACCUTANE [Suspect]
     Indication: ACNE VARIOLIFORMIS
     Route: 048
     Dates: start: 20030626, end: 20030929
  2. KLIOVANCE [Concomitant]
     Indication: DRUG USE FOR UNKNOWN INDICATION

REACTIONS (4)
  - DYSPNOEA [None]
  - LETHARGY [None]
  - NEUTROPENIA [None]
  - PYREXIA [None]
